FAERS Safety Report 5663666-4 (Version None)
Quarter: 2008Q1

REPORT INFORMATION
  Report Type: 
  Country: None (occurrence: None)
  Receive Date: 20080310
  Receipt Date: 20080225
  Transmission Date: 20080703
  Serious: Yes (Other)
  Sender: FDA-Public Use
  Company Number: 2008JP000744

PATIENT
  Age: 33 Year
  Sex: Male
  Weight: 67 kg

DRUGS (11)
  1. PROGRAF [Suspect]
     Indication: RENAL TRANSPLANT
     Dosage: 5 MG, BID, ORAL
     Route: 048
     Dates: start: 20070526
  2. SIMULECT [Concomitant]
  3. CELLCEPT [Concomitant]
  4. MEDROL [Concomitant]
  5. ADALAT ORODISPERSIBLE CR TABLET [Concomitant]
  6. OMEPRAL TABLET [Concomitant]
  7. BAKTAR (SULFAMETHOXAZOLE, TRIMETHOPRIM) TABLET [Concomitant]
  8. AMOBAN (ZOPICLONE) TABLET [Concomitant]
  9. ALEISON (EPINASTINE) TABLET [Concomitant]
  10. ZESULAN (MEQUITAZINE) TABLET [Concomitant]
  11. HALCION [Concomitant]

REACTIONS (5)
  - BLOOD CREATININE INCREASED [None]
  - CONDITION AGGRAVATED [None]
  - PROTEINURIA [None]
  - RENAL DISORDER [None]
  - TRANSPLANT REJECTION [None]
